FAERS Safety Report 8210917-8 (Version None)
Quarter: 2012Q1

REPORT INFORMATION
  Report Type: 
  Country: None (occurrence: None)
  Receive Date: 20120315
  Receipt Date: 20120307
  Transmission Date: 20120608
  Serious: Yes (Other)
  Sender: FDA-Public Use
  Company Number: US-BAYER-2012-023567

PATIENT
  Age: 29 Year
  Sex: Female
  Weight: 91.6 kg

DRUGS (3)
  1. YAZ [Suspect]
     Route: 048
  2. ASPIR-81 [Concomitant]
  3. YASMIN [Suspect]
     Route: 048

REACTIONS (1)
  - DEEP VEIN THROMBOSIS [None]
